FAERS Safety Report 12036837 (Version 2)
Quarter: 2016Q1

REPORT INFORMATION
  Report Type: Spontaneous
  Country: US (occurrence: US)
  Receive Date: 20160208
  Receipt Date: 20160211
  Transmission Date: 20160526
  Serious: No
  Sender: FDA-Public Use
  Company Number: US-009507513-1602USA002283

PATIENT
  Age: 71 Year
  Sex: Male

DRUGS (1)
  1. PROVENTIL [Suspect]
     Active Substance: ALBUTEROL
     Indication: RESPIRATORY TRACT CONGESTION
     Dosage: 120 MICROGRAM / 2 PUFFS EVERY 4 TO 6 HOURS
     Route: 055
     Dates: start: 20160114

REACTIONS (5)
  - Cough [Unknown]
  - Nasal congestion [Unknown]
  - Dysphonia [Unknown]
  - Product quality issue [Unknown]
  - Drug dose omission [Unknown]

NARRATIVE: CASE EVENT DATE: 20160201
